FAERS Safety Report 16373870 (Version 1)
Quarter: 2019Q2

REPORT INFORMATION
  Report Type: Spontaneous
  Country: US (occurrence: US)
  Receive Date: 20190530
  Receipt Date: 20190530
  Transmission Date: 20190711
  Serious: No
  Sender: FDA-Public Use
  Company Number: US-TEVA-2019-US-1046219

PATIENT
  Age: 43 Year
  Sex: Male
  Weight: 113 kg

DRUGS (2)
  1. FENTORA [Suspect]
     Active Substance: FENTANYL CITRATE
     Indication: BREAKTHROUGH PAIN
     Route: 065
     Dates: start: 201903
  2. FENTORA [Suspect]
     Active Substance: FENTANYL CITRATE
     Indication: NEURALGIA

REACTIONS (7)
  - Product solubility abnormal [Unknown]
  - Stomatitis [Unknown]
  - Mouth ulceration [Unknown]
  - Therapeutic product effect decreased [Unknown]
  - Product packaging issue [Unknown]
  - Drug ineffective [Unknown]
  - Pain [Unknown]
